FAERS Safety Report 5526121-8 (Version None)
Quarter: 2007Q4

REPORT INFORMATION
  Report Type: 
  Country: None (occurrence: None)
  Receive Date: 20071120
  Receipt Date: 20071105
  Transmission Date: 20080405
  Serious: Yes (Other)
  Sender: FDA-Public Use
  Company Number: DE-GDP-07403188

PATIENT
  Age: 68 Year
  Sex: Male

DRUGS (2)
  1. METVIX /FRA/ (METHYL AMINOLEVULINATE HYDROCHLORIDE) CREAM 16 %, CREAM [Suspect]
     Indication: ACTINIC KERATOSIS
     Dosage: 1 DF TOTAL TOPICAL, 1 DF TOTAL TOPICAL
     Route: 061
     Dates: start: 20071012, end: 20071012
  2. METVIX /FRA/ (METHYL AMINOLEVULINATE HYDROCHLORIDE) CREAM 16 %, CREAM [Suspect]
     Indication: ACTINIC KERATOSIS
     Dosage: 1 DF TOTAL TOPICAL, 1 DF TOTAL TOPICAL
     Route: 061
     Dates: start: 20071014, end: 20071014

REACTIONS (7)
  - APPLICATION SITE REACTION [None]
  - BLOOD GLUCOSE INCREASED [None]
  - CHILLS [None]
  - MALAISE [None]
  - PAIN IN EXTREMITY [None]
  - PYREXIA [None]
  - SKIN REACTION [None]
